FAERS Safety Report 23145798 (Version 2)
Quarter: 2023Q4

REPORT INFORMATION
  Report Type: Report from Study
  Country: NL (occurrence: NL)
  Receive Date: 20231103
  Receipt Date: 20231116
  Transmission Date: 20240110
  Serious: Yes (Other)
  Sender: FDA-Public Use
  Company Number: NL-SANDOZ-SDZ2023NL050088

PATIENT
  Sex: Male

DRUGS (1)
  1. ACLASTA [Suspect]
     Active Substance: ZOLEDRONIC ACID
     Indication: Product used for unknown indication
     Dosage: 5 MG, 1 X PER ONCE
     Route: 042

REACTIONS (3)
  - Pneumonia [Unknown]
  - Procedural complication [Unknown]
  - Adverse drug reaction [Unknown]
